FAERS Safety Report 6430879-3 (Version None)
Quarter: 2009Q4

REPORT INFORMATION
  Report Type: 
  Country: None (occurrence: None)
  Receive Date: 20091105
  Receipt Date: 20091105
  Transmission Date: 20100525
  Serious: Yes (Other)
  Sender: FDA-Public Use
  Company Number: None

PATIENT
  Age: 44 Year
  Sex: Female
  Weight: 87.0906 kg

DRUGS (2)
  1. LEVOTHYROXINE SODIUM [Suspect]
     Indication: HYPOTHYROIDISM
     Dosage: 25 MCG 1 TIME PO
     Route: 048
     Dates: start: 20090711, end: 20090918
  2. LEVOTHYROXINE SODIUM [Suspect]
     Indication: THYROID CANCER
     Dosage: 25 MCG 1 TIME PO
     Route: 048
     Dates: start: 20090711, end: 20090918

REACTIONS (3)
  - DECREASED ACTIVITY [None]
  - DEPRESSION [None]
  - PRODUCT SUBSTITUTION ISSUE [None]
